FAERS Safety Report 7792672-9 (Version None)
Quarter: 2011Q4

REPORT INFORMATION
  Report Type: 
  Country: None (occurrence: None)
  Receive Date: 20111003
  Receipt Date: 20110922
  Transmission Date: 20120403
  Serious: Yes (Other)
  Sender: FDA-Public Use
  Company Number: JP-SANOFI-AVENTIS-2011SA062977

PATIENT

DRUGS (1)
  1. LASIX [Suspect]
     Route: 065

REACTIONS (2)
  - DELIRIUM [None]
  - ALTERED STATE OF CONSCIOUSNESS [None]
